FAERS Safety Report 9535853 (Version 1)
Quarter: 2013Q2

REPORT INFORMATION
  Report Type: Spontaneous
  Country: US (occurrence: None)
  Receive Date: 20130507
  Receipt Date: 20130507
  Transmission Date: 20140414
  Serious: No
  Sender: FDA-Public Use
  Company Number: PHEH2013US003962

PATIENT
  Age: 4 Year
  Sex: Male

DRUGS (4)
  1. AFINITOR (RAD) UNKNOWN [Suspect]
     Dosage: 2.5 MG/DAY, ORAL
     Route: 048
     Dates: start: 20130203
  2. ONFI (CLOBAZAM) [Concomitant]
  3. VIGABATRIN (VIGABATRIN) [Concomitant]
  4. DILANTIN (PHANYTOIN SODIUM) [Concomitant]

REACTIONS (4)
  - Mood altered [None]
  - Inappropriate affect [None]
  - Sleep disorder [None]
  - Body temperature increased [None]
